FAERS Safety Report 7176818-1 (Version None)
Quarter: 2010Q4

REPORT INFORMATION
  Report Type: 
  Country: None (occurrence: None)
  Receive Date: 20101220
  Receipt Date: 20101216
  Transmission Date: 20110411
  Serious: Yes (Other)
  Sender: FDA-Public Use
  Company Number: US-BRISTOL-MYERS SQUIBB COMPANY-15439037

PATIENT
  Age: 56 Year
  Sex: Male

DRUGS (2)
  1. CETUXIMAB [Suspect]
     Indication: TONGUE NEOPLASM MALIGNANT STAGE UNSPECIFIED
     Dosage: LOADING DOSE-450MG/M2 MAINTANENCE DOSE-250MG/M2 LAST DOSE ON 23JUL08
     Dates: start: 20080507
  2. CISPLATIN [Suspect]
     Indication: TONGUE NEOPLASM MALIGNANT STAGE UNSPECIFIED
     Dosage: RECEIVED ON 11JUN08 AND LAST DOSE ON 02JUL08.
     Dates: start: 20080514

REACTIONS (1)
  - DEMYELINATING POLYNEUROPATHY [None]
